FAERS Safety Report 4704339-1 (Version None)
Quarter: 2005Q2

REPORT INFORMATION
  Report Type: 
  Country: None (occurrence: None)
  Receive Date: 20050628
  Receipt Date: 20050616
  Transmission Date: 20051028
  Serious: Yes (Hospitalization)
  Sender: FDA-Public Use
  Company Number: A044-002-005652

PATIENT
  Age: 65 Year
  Sex: Female

DRUGS (3)
  1. ARICEPT [Suspect]
     Indication: DEMENTIA
     Dosage: 5 MG 1 IN1 D ORAL
     Route: 048
     Dates: start: 20041208, end: 20050114
  2. PARCETAMOL (PARACETAMOL) [Concomitant]
  3. QUININE SULFATE [Concomitant]

REACTIONS (10)
  - ACTIVITIES OF DAILY LIVING IMPAIRED [None]
  - COMMUNICATION DISORDER [None]
  - CONDITION AGGRAVATED [None]
  - DEMENTIA [None]
  - DISTURBANCE IN ATTENTION [None]
  - DYSPHASIA [None]
  - FLAT AFFECT [None]
  - MEMORY IMPAIRMENT [None]
  - SLUGGISHNESS [None]
  - TACHYPHYLAXIS [None]
